FAERS Safety Report 11805445 (Version 2)
Quarter: 2016Q1

REPORT INFORMATION
  Report Type: Spontaneous
  Country: US (occurrence: US)
  Receive Date: 20151207
  Receipt Date: 20160209
  Transmission Date: 20160525
  Serious: No
  Sender: FDA-Public Use
  Company Number: US-CELGENEUS-USA-2015104982

PATIENT
  Age: 37 Year
  Sex: Female
  Weight: 83.99 kg

DRUGS (3)
  1. OTEZLA [Suspect]
     Active Substance: APREMILAST
     Indication: PSORIASIS
     Route: 048
     Dates: start: 20150120
  2. OTEZLA [Suspect]
     Active Substance: APREMILAST
     Route: 048
     Dates: start: 201503
  3. NOR-Q-D [Concomitant]
     Indication: CONTRACEPTION
     Route: 065
     Dates: start: 2001

REACTIONS (3)
  - Eructation [Recovering/Resolving]
  - Weight decreased [Recovering/Resolving]
  - Dyspepsia [Recovered/Resolved]

NARRATIVE: CASE EVENT DATE: 201503
